FAERS Safety Report 22070676 (Version 1)
Quarter: 2023Q1

REPORT INFORMATION
  Report Type: Report from Study
  Country: US (occurrence: US)
  Receive Date: 20230307
  Receipt Date: 20230307
  Transmission Date: 20230418
  Serious: Yes (Other)
  Sender: FDA-Public Use
  Company Number: US-002147023-NVSC2023US048433

PATIENT
  Sex: Female

DRUGS (7)
  1. COSENTYX [Suspect]
     Active Substance: SECUKINUMAB
     Indication: Psoriasis
     Dosage: 300 MG (2 SYRINGES OF 150 MG/ML SUBCUTANEOUS)
     Route: 058
     Dates: end: 202003
  2. BETAMETHASONE [Concomitant]
     Active Substance: BETAMETHASONE
     Indication: Psoriasis
     Dosage: 0.1 % (LOTION)
     Route: 061
  3. CLOBETASOL [Concomitant]
     Active Substance: CLOBETASOL
     Indication: Psoriasis
     Dosage: 0.05 %, BID
     Route: 061
  4. FLUOCINONIDE [Concomitant]
     Active Substance: FLUOCINONIDE
     Indication: Psoriasis
     Dosage: 0.05 %
     Route: 061
  5. ATORVASTATIN [Concomitant]
     Active Substance: ATORVASTATIN
     Indication: Psoriasis
     Dosage: 20 MG
     Route: 048
  6. HYDROCHLOROTHIAZIDE\LISINOPRIL [Concomitant]
     Active Substance: HYDROCHLOROTHIAZIDE\LISINOPRIL
     Indication: Product used for unknown indication
     Dosage: UNK
     Route: 065
  7. OXYBUTYNIN [Concomitant]
     Active Substance: OXYBUTYNIN
     Indication: Product used for unknown indication
     Dosage: UNK
     Route: 065

REACTIONS (1)
  - Psoriasis [Unknown]
